FAERS Safety Report 9954875 (Version 3)
Quarter: 2014Q2

REPORT INFORMATION
  Report Type: Spontaneous
  Country: US (occurrence: US)
  Receive Date: 20140304
  Receipt Date: 20140416
  Transmission Date: 20141212
  Serious: Yes (Other)
  Sender: FDA-Public Use
  Company Number: US-JNJFOC-20140214641

PATIENT
  Age: 49 Year
  Sex: Female
  Weight: 136.08 kg

DRUGS (3)
  1. STELARA [Suspect]
     Indication: PSORIASIS
     Route: 058
     Dates: start: 20130530
  2. STELARA [Suspect]
     Indication: PSORIASIS
     Route: 058
     Dates: start: 20140310
  3. STELARA [Suspect]
     Indication: PSORIASIS
     Route: 058
     Dates: start: 20121017

REACTIONS (4)
  - Myocardial infarction [Unknown]
  - Cardiomyopathy [Unknown]
  - Urinary tract infection [Unknown]
  - Mental disorder [Unknown]
